FAERS Safety Report 20091995 (Version 2)
Quarter: 2021Q4

REPORT INFORMATION
  Report Type: Spontaneous
  Country: ES (occurrence: ES)
  Receive Date: 20211119
  Receipt Date: 20211129
  Transmission Date: 20220303
  Serious: Yes (Hospitalization)
  Sender: FDA-Public Use
  Company Number: ES-BAXTER-2021BAX027986

PATIENT
  Sex: Female

DRUGS (3)
  1. PACLITAXEL [Suspect]
     Active Substance: PACLITAXEL
     Indication: Breast cancer
     Dosage: UNK UNK, QW
     Route: 065
  2. GENOXAL [Suspect]
     Active Substance: CYCLOPHOSPHAMIDE
     Indication: Breast cancer
     Dosage: UNK UNK, CYCLE, (UNK,1 CYCLICAL)
     Route: 065
  3. DOXORUBICIN HYDROCHLORIDE [Suspect]
     Active Substance: DOXORUBICIN HYDROCHLORIDE
     Indication: Breast cancer
     Dosage: UNK UNK, CYCLE, (UNK, 1CYCLICAL)
     Route: 065

REACTIONS (5)
  - Dyspepsia [Unknown]
  - Nausea [Unknown]
  - Constipation [Unknown]
  - Asthenia [Unknown]
  - Exposure during pregnancy [Unknown]
